FAERS Safety Report 7992992-9 (Version None)
Quarter: 2011Q4

REPORT INFORMATION
  Report Type: 
  Country: None (occurrence: None)
  Receive Date: 20111219
  Receipt Date: 20110209
  Transmission Date: 20120403
  Serious: No
  Sender: FDA-Public Use
  Company Number: US-ASTRAZENECA-2011SE07977

PATIENT
  Age: 41 Year
  Sex: Female

DRUGS (3)
  1. NEXIUM [Concomitant]
  2. CRESTOR [Suspect]
     Route: 048
  3. RHINOCORT [Concomitant]

REACTIONS (2)
  - VISUAL IMPAIRMENT [None]
  - DIABETES MELLITUS [None]
